FAERS Safety Report 7867180-7 (Version None)
Quarter: 2011Q4

REPORT INFORMATION
  Report Type: 
  Country: None (occurrence: None)
  Receive Date: 20111028
  Receipt Date: 20111024
  Transmission Date: 20120403
  Serious: Yes (Other)
  Sender: FDA-Public Use
  Company Number: US-GLAXOSMITHKLINE-A0944790A

PATIENT
  Age: 32 Year
  Sex: Female

DRUGS (4)
  1. NEBULIZER [Concomitant]
  2. ALBUTEROL [Concomitant]
  3. ADVAIR DISKUS 100/50 [Suspect]
     Indication: ASTHMA
     Dosage: 1PUFF PER DAY
     Route: 055
     Dates: start: 20060301
  4. BIRTH CONTROL PILLS [Concomitant]

REACTIONS (3)
  - DRUG ADMINISTRATION ERROR [None]
  - ASTHMA [None]
  - PRODUCT QUALITY ISSUE [None]
